FAERS Safety Report 9885148 (Version 1)
Quarter: 2014Q1

REPORT INFORMATION
  Report Type: Spontaneous
  Country: BE (occurrence: BE)
  Receive Date: 20140210
  Receipt Date: 20140210
  Transmission Date: 20141002
  Serious: Yes (Hospitalization)
  Sender: FDA-Public Use
  Company Number: BE-SA-2014SA012345

PATIENT
  Age: 55 Year
  Sex: Female

DRUGS (5)
  1. ARAVA [Suspect]
     Indication: RHEUMATOID ARTHRITIS
     Route: 048
     Dates: start: 2006, end: 201304
  2. ARAVA [Suspect]
     Indication: RHEUMATOID ARTHRITIS
     Route: 048
     Dates: start: 201306
  3. LAMISIL [Suspect]
     Indication: TINEA PEDIS
     Route: 048
     Dates: start: 20130924, end: 20131104
  4. L-THYROXINE [Suspect]
     Indication: HYPOTHYROIDISM
     Route: 048
     Dates: start: 2005
  5. SULCONAZOLE NITRATE [Suspect]
     Indication: TINEA PEDIS
     Route: 065
     Dates: start: 20130924, end: 20131104

REACTIONS (4)
  - Jaundice [Recovering/Resolving]
  - Pruritus [Recovering/Resolving]
  - Nausea [Recovering/Resolving]
  - Liver function test abnormal [Recovering/Resolving]
